FAERS Safety Report 5383545-X (Version None)
Quarter: 2007Q3

REPORT INFORMATION
  Report Type: 
  Country: None (occurrence: None)
  Receive Date: 20070706
  Receipt Date: 20070622
  Transmission Date: 20080115
  Serious: No
  Sender: FDA-Public Use
  Company Number: 2007-158472-NL

PATIENT
  Age: 42 Year
  Sex: Female

DRUGS (1)
  1. MARVELON (BATCH #: 475974-471128) [Suspect]
     Indication: CONTRACEPTION
     Dosage: DF ORAL
     Route: 048

REACTIONS (2)
  - INAPPROPRIATE SCHEDULE OF DRUG ADMINISTRATION [None]
  - PREGNANCY ON ORAL CONTRACEPTIVE [None]
